FAERS Safety Report 4792916-1 (Version None)
Quarter: 2005Q4

REPORT INFORMATION
  Report Type: 
  Country: None (occurrence: None)
  Receive Date: 20051010
  Receipt Date: 20050519
  Transmission Date: 20060501
  Serious: Yes (Hospitalization)
  Sender: FDA-Public Use
  Company Number: US-ROCHE-405143

PATIENT
  Age: 56 Year
  Sex: Female

DRUGS (14)
  1. CAPECITABINE [Suspect]
     Route: 048
     Dates: start: 20050419, end: 20050425
  2. ERBITUX [Suspect]
     Route: 042
     Dates: start: 20050419, end: 20050419
  3. IRINOTECAN [Suspect]
     Route: 042
     Dates: start: 20050419, end: 20050419
  4. ATIVAN [Concomitant]
  5. COMPAZINE [Concomitant]
  6. COUMADIN [Concomitant]
  7. DECADRON [Concomitant]
  8. DEXTROSE [Concomitant]
  9. IMODIUM [Concomitant]
  10. KYTRIL [Concomitant]
  11. REGLAN [Concomitant]
  12. TIMOPTIC [Concomitant]
  13. VICODIN [Concomitant]
  14. VITAMIN K [Concomitant]

REACTIONS (2)
  - INTESTINAL OBSTRUCTION [None]
  - SMALL INTESTINAL OBSTRUCTION [None]
